FAERS Safety Report 9876260 (Version 1)
Quarter: 2014Q1

REPORT INFORMATION
  Report Type: Spontaneous
  Country: US (occurrence: None)
  Receive Date: 20140205
  Receipt Date: 20140205
  Transmission Date: 20141002
  Serious: Yes (Other)
  Sender: FDA-Public Use
  Company Number: None

PATIENT
  Age: 19 Year
  Sex: Female

DRUGS (1)
  1. AVIANE [Suspect]

REACTIONS (5)
  - Headache [None]
  - Mood swings [None]
  - Fatigue [None]
  - Sleep disorder [None]
  - Asthenia [None]
